FAERS Safety Report 24089558 (Version 2)
Quarter: 2024Q3

REPORT INFORMATION
  Report Type: Report from Study
  Country: US (occurrence: US)
  Receive Date: 20240715
  Receipt Date: 20240806
  Transmission Date: 20241016
  Serious: No
  Sender: ALEXION PHARMACEUTICALS
  Company Number: US-AstraZeneca-CH-00662541A

PATIENT
  Sex: Female

DRUGS (1)
  1. ULTOMIRIS [Suspect]
     Active Substance: RAVULIZUMAB-CWVZ
     Indication: Paroxysmal nocturnal haemoglobinuria
     Dosage: UNK
     Route: 041
     Dates: start: 20200610

REACTIONS (6)
  - Infection [Unknown]
  - Eye swelling [Unknown]
  - Ocular hyperaemia [Unknown]
  - Crying [Unknown]
  - Paraesthesia [Unknown]
  - Hypersensitivity [Unknown]
